FAERS Safety Report 5557148-8 (Version None)
Quarter: 2007Q4

REPORT INFORMATION
  Report Type: 
  Country: None (occurrence: None)
  Receive Date: 20071214
  Receipt Date: 20071205
  Transmission Date: 20080405
  Serious: Yes (Other)
  Sender: FDA-Public Use
  Company Number: JP-JNJFOC-20071202074

PATIENT
  Age: 64 Year
  Sex: Male

DRUGS (13)
  1. ITRIZOLE [Suspect]
     Indication: NAIL TINEA
     Route: 048
  2. LASIX [Concomitant]
     Route: 065
  3. CALTAN [Concomitant]
     Route: 048
  4. BASEN [Concomitant]
     Route: 048
  5. NORVASC [Concomitant]
     Route: 048
  6. ADALAT [Concomitant]
     Route: 048
  7. GASTER [Concomitant]
     Route: 065
  8. ALOSENN [Concomitant]
     Route: 048
  9. DIOVAN [Concomitant]
     Route: 048
  10. ADALAT [Concomitant]
     Route: 048
  11. ZYLORIC [Concomitant]
     Route: 048
  12. PERSELIN [Concomitant]
     Route: 048
  13. DOXAZOSIN MESYLATE [Concomitant]
     Route: 048

REACTIONS (2)
  - ANAEMIA [None]
  - DRUG INTERACTION POTENTIATION [None]
